FAERS Safety Report 5628780-8 (Version None)
Quarter: 2008Q1

REPORT INFORMATION
  Report Type: 
  Country: None (occurrence: None)
  Receive Date: 20080215
  Receipt Date: 20080209
  Transmission Date: 20080703
  Serious: Yes (Other)
  Sender: FDA-Public Use
  Company Number: US-PFIZER INC-2008012664

PATIENT
  Sex: Female
  Weight: 68 kg

DRUGS (3)
  1. CELEBREX [Suspect]
     Indication: PAIN IN EXTREMITY
     Dates: start: 20080207, end: 20080208
  2. CORTISONE [Suspect]
     Indication: ARTHRALGIA
     Dates: start: 20070101, end: 20070101
  3. ASPIRIN [Concomitant]

REACTIONS (8)
  - DYSPHONIA [None]
  - ERYTHEMA [None]
  - FALL [None]
  - HEADACHE [None]
  - JOINT SPRAIN [None]
  - MALAISE [None]
  - SWELLING FACE [None]
  - THROAT TIGHTNESS [None]
